FAERS Safety Report 21184690 (Version 2)
Quarter: 2023Q1

REPORT INFORMATION
  Report Type: Spontaneous
  Country: US (occurrence: US)
  Receive Date: 20220808
  Receipt Date: 20230323
  Transmission Date: 20230418
  Serious: Yes (Other)
  Sender: FDA-Public Use
  Company Number: US-SA-2022SA321580

PATIENT
  Age: 35 Year
  Sex: Male

DRUGS (2)
  1. ELOCTATE [Suspect]
     Active Substance: EFMOROCTOCOG ALFA
     Dosage: 4125 IU
     Route: 042
  2. ELOCTATE [Suspect]
     Active Substance: EFMOROCTOCOG ALFA
     Dosage: 3960 TO 4290 U
     Route: 042

REACTIONS (2)
  - Haemorrhage [Recovered/Resolved]
  - Traumatic haemorrhage [Unknown]

NARRATIVE: CASE EVENT DATE: 20220731
